FAERS Safety Report 13465748 (Version 1)
Quarter: 2017Q2

REPORT INFORMATION
  Report Type: Spontaneous
  Country: US (occurrence: US)
  Receive Date: 20170420
  Receipt Date: 20170420
  Transmission Date: 20170830
  Serious: Yes (Other)
  Sender: FDA-Public Use
  Company Number: None

PATIENT
  Age: 68 Year
  Sex: Male

DRUGS (1)
  1. MYCOPHENOLATE 500MG ACCORD [Suspect]
     Active Substance: MYCOPHENOLATE MOFETIL
     Indication: MYASTHENIA GRAVIS
     Dosage: 500MG 2 TABS TWICE DAILY BY MOUTH
     Route: 048
     Dates: start: 20170204, end: 20170306

REACTIONS (1)
  - Eyelid oedema [None]

NARRATIVE: CASE EVENT DATE: 20170308
